FAERS Safety Report 6138408-9 (Version None)
Quarter: 2009Q1

REPORT INFORMATION
  Report Type: 
  Country: None (occurrence: None)
  Receive Date: 20090331
  Receipt Date: 20090320
  Transmission Date: 20090719
  Serious: Yes (Other)
  Sender: FDA-Public Use
  Company Number: PHEH2009US02822

PATIENT
  Sex: Male
  Weight: 71.7 kg

DRUGS (6)
  1. RECLAST [Suspect]
     Indication: OSTEOPOROSIS
     Dosage: 5 MG OVER 30 MIN.
     Route: 042
     Dates: start: 20090209
  2. FORTEO [Concomitant]
     Dosage: 20 MCG SQ
     Dates: start: 20061008, end: 20090120
  3. VITAMIN D [Concomitant]
     Dosage: 50000 IU Q 3 WEEKS
     Route: 048
     Dates: start: 20081201
  4. CITRACAL + D [Concomitant]
     Dosage: 2 TABS IN AM
     Route: 048
     Dates: start: 20040101
  5. MULTIPLE VITAMINS [Concomitant]
     Dosage: ONE TABLET DAILY
     Dates: start: 19860101
  6. VITAMIN B-12 [Concomitant]
     Dosage: 500 MCG DAILY
     Route: 048

REACTIONS (13)
  - BLOOD GLUCOSE INCREASED [None]
  - CHILLS [None]
  - EXTRASYSTOLES [None]
  - HAEMATOCRIT DECREASED [None]
  - HAEMOGLOBIN DECREASED [None]
  - HYPOTENSION [None]
  - LOSS OF CONSCIOUSNESS [None]
  - LYMPHOCYTE COUNT DECREASED [None]
  - MEAN PLATELET VOLUME DECREASED [None]
  - MYOCARDIAL INFARCTION [None]
  - NEUTROPHIL COUNT INCREASED [None]
  - RED BLOOD CELL COUNT DECREASED [None]
  - SINUS BRADYCARDIA [None]
